FAERS Safety Report 10169750 (Version 1)
Quarter: 2014Q2

REPORT INFORMATION
  Report Type: Spontaneous
  Country: DE (occurrence: DE)
  Receive Date: 20140513
  Receipt Date: 20140513
  Transmission Date: 20141212
  Serious: Yes (Life-Threatening)
  Sender: FDA-Public Use
  Company Number: DE-DRREDDYS-GER/GER/14/0040325

PATIENT
  Age: 37 Year
  Sex: Female

DRUGS (2)
  1. VENLAFAXINE [Suspect]
     Indication: PRODUCT USED FOR UNKNOWN INDICATION
     Route: 048
  2. VENLAFAXINE [Suspect]

REACTIONS (5)
  - Intentional overdose [Recovered/Resolved]
  - Epilepsy [Recovered/Resolved]
  - Cardiovascular disorder [Recovered/Resolved]
  - Respiratory failure [Recovered/Resolved]
  - Drug level increased [Recovered/Resolved]
